FAERS Safety Report 6961500-3 (Version None)
Quarter: 2010Q3

REPORT INFORMATION
  Report Type: 
  Country: None (occurrence: None)
  Receive Date: 20100901
  Receipt Date: 20100823
  Transmission Date: 20110219
  Serious: Yes (Other)
  Sender: FDA-Public Use
  Company Number: US-ABBOTT-10P-163-0665329-00

PATIENT
  Sex: Female
  Weight: 81.72 kg

DRUGS (4)
  1. HUMIRA [Suspect]
     Indication: PSORIASIS
     Dates: start: 20070101, end: 20091201
  2. HUMIRA [Suspect]
     Dates: start: 20100301
  3. DEPAKOTE [Concomitant]
     Indication: MIGRAINE
  4. FLUOXITANE [Concomitant]
     Indication: DEPRESSION

REACTIONS (7)
  - ARTHRITIS [None]
  - BURSITIS [None]
  - EXERCISE TOLERANCE DECREASED [None]
  - FATIGUE [None]
  - IMPAIRED HEALING [None]
  - OSTEONECROSIS [None]
  - PSORIASIS [None]
